FAERS Safety Report 10363684 (Version 1)
Quarter: 2014Q3

REPORT INFORMATION
  Report Type: Spontaneous
  Country: GR (occurrence: None)
  Receive Date: 20140731
  Receipt Date: 20140731
  Transmission Date: 20150326
  Serious: Yes (Death, Other)
  Sender: FDA-Public Use
  Company Number: 2014GR00919

PATIENT
  Sex: Female

DRUGS (5)
  1. CYCLOPHOSPHAMIDE. [Suspect]
     Active Substance: CYCLOPHOSPHAMIDE
     Indication: BREAST CANCER
     Dosage: 3 CYCLES OF 840 MG/M2. EVERY 2 WEEKS
  2. METHOTREXATE [Suspect]
     Active Substance: METHOTREXATE
     Dosage: 3  CYCLES OF 840 MG/M2 EVERU 2 WEEKS
  3. PACLITAXEL. [Suspect]
     Active Substance: PACLITAXEL
     Indication: BREAST CANCER
     Dosage: 3 CYCLES OF 200 MG/M2 EVERY 2 WEEKS
  4. FLUOROURACIL. [Suspect]
     Active Substance: FLUOROURACIL
     Indication: BREAST CANCER
     Dosage: 3 CYCLES OF 840 MG/M2
  5. EPIRUBICIN [Suspect]
     Active Substance: EPIRUBICIN
     Indication: BREAST CANCER
     Dosage: 3 CYCLES OF 110 MG/M2 EVERY 2 WEEKS

REACTIONS (1)
  - Febrile neutropenia [None]
